FAERS Safety Report 12418702 (Version 2)
Quarter: 2016Q3

REPORT INFORMATION
  Report Type: Spontaneous
  Country: US (occurrence: US)
  Receive Date: 20160531
  Receipt Date: 20160928
  Transmission Date: 20161109
  Serious: No
  Sender: FDA-Public Use
  Company Number: US-BAYER-2016-103833

PATIENT
  Age: 76 Year
  Sex: Female
  Weight: 73.92 kg

DRUGS (3)
  1. MIRALAX [Suspect]
     Active Substance: POLYETHYLENE GLYCOL 3350
     Indication: CONSTIPATION
     Dosage: UNK
     Route: 048
  2. BENEFIBER [Concomitant]
     Active Substance: STARCH, WHEAT
  3. MIRALAX [Suspect]
     Active Substance: POLYETHYLENE GLYCOL 3350
     Indication: CONSTIPATION
     Dosage: 1/2 DF,QD
     Route: 048
     Dates: start: 201605

REACTIONS (4)
  - Underdose [None]
  - Product use issue [None]
  - Product use issue [Unknown]
  - Diarrhoea [Recovered/Resolved]
